FAERS Safety Report 12441345 (Version 1)
Quarter: 2016Q2

REPORT INFORMATION
  Report Type: Spontaneous
  Country: US (occurrence: US)
  Receive Date: 20160607
  Receipt Date: 20160607
  Transmission Date: 20160815
  Serious: No
  Sender: FDA-Public Use
  Company Number: US-PFIZER INC-2016259497

PATIENT
  Age: 23 Year
  Sex: Male
  Weight: 63 kg

DRUGS (4)
  1. TACROLIMUS. [Concomitant]
     Active Substance: TACROLIMUS
     Indication: LIVER TRANSPLANT
     Dosage: 1 MG, 1X/DAY
     Route: 048
  2. DALFOPRISTIN/QUINUPRISTIN [Suspect]
     Active Substance: DALFOPRISTIN\QUINUPRISTIN
     Indication: ENTEROCOCCAL INFECTION
     Dosage: 500 MG, 3X/DAY (EVERY 8 HOURS)
     Route: 042
     Dates: start: 20160403
  3. ZYVOX [Concomitant]
     Active Substance: LINEZOLID
     Indication: ENTEROCOCCAL INFECTION
     Dosage: 600 MG, 2X/DAY (EVERY 12 HOURS)
     Route: 042
     Dates: start: 20160329, end: 20160504
  4. SYNERCID [Suspect]
     Active Substance: DALFOPRISTIN\QUINUPRISTIN
     Dosage: UNK
     Dates: start: 201604

REACTIONS (3)
  - Myalgia [Not Recovered/Not Resolved]
  - Asthenia [Unknown]
  - Pain [Unknown]

NARRATIVE: CASE EVENT DATE: 201604
